FAERS Safety Report 10306999 (Version 1)
Quarter: 2014Q3

REPORT INFORMATION
  Report Type: Spontaneous
  Country: US (occurrence: US)
  Receive Date: 20140715
  Receipt Date: 20140715
  Transmission Date: 20150326
  Serious: No
  Sender: FDA-Public Use
  Company Number: US-009507513-1407USA005757

PATIENT
  Age: 15 Year
  Sex: Female
  Weight: 68.27 kg

DRUGS (1)
  1. NEXPLANON [Suspect]
     Active Substance: ETONOGESTREL
     Indication: CONTRACEPTION
     Dosage: UNK; 1 ROD
     Route: 059
     Dates: start: 20140703

REACTIONS (2)
  - Implant site pruritus [Unknown]
  - Implant site erythema [Unknown]

NARRATIVE: CASE EVENT DATE: 201407
